FAERS Safety Report 6977919-0 (Version None)
Quarter: 2010Q3

REPORT INFORMATION
  Report Type: 
  Country: None (occurrence: None)
  Receive Date: 20100913
  Receipt Date: 20100902
  Transmission Date: 20110219
  Serious: Yes (Hospitalization)
  Sender: FDA-Public Use
  Company Number: US-US-EMD SERONO, INC.-7016675

PATIENT
  Sex: Female
  Weight: 154 kg

DRUGS (4)
  1. REBIF [Suspect]
     Indication: MULTIPLE SCLEROSIS
     Route: 058
     Dates: start: 20071009
  2. LORTAB [Concomitant]
     Indication: PAIN
     Dates: start: 20070101
  3. INSULIN [Concomitant]
     Indication: TYPE 1 DIABETES MELLITUS
  4. UNSPECIFIED MEDICATIONS [Concomitant]

REACTIONS (4)
  - EMOTIONAL DISTRESS [None]
  - HEADACHE [None]
  - SMEAR CERVIX ABNORMAL [None]
  - VULVOVAGINAL HUMAN PAPILLOMA VIRUS INFECTION [None]
